FAERS Safety Report 16694796 (Version 1)
Quarter: 2019Q3

REPORT INFORMATION
  Report Type: Other
  Country: US (occurrence: US)
  Receive Date: 20190812
  Receipt Date: 20190812
  Transmission Date: 20191004
  Serious: Yes (Hospitalization, Other)
  Sender: FDA-Public Use
  Company Number: US-RARE DISEASE THERAPEUTICS, INC.-2073062

PATIENT
  Age: 10 Year
  Sex: Female

DRUGS (17)
  1. MERCAPTOPURINE. [Suspect]
     Active Substance: MERCAPTOPURINE
     Route: 065
  2. MERCAPTOPURINE. [Suspect]
     Active Substance: MERCAPTOPURINE
     Route: 065
  3. MERCAPTOPURINE. [Suspect]
     Active Substance: MERCAPTOPURINE
     Route: 065
  4. CYTARABINE. [Suspect]
     Active Substance: CYTARABINE
     Route: 065
  5. MERCAPTOPURINE. [Suspect]
     Active Substance: MERCAPTOPURINE
     Route: 065
  6. MERCAPTOPURINE. [Suspect]
     Active Substance: MERCAPTOPURINE
     Route: 065
  7. VINCRISTINE [Suspect]
     Active Substance: VINCRISTINE
     Route: 065
  8. CYCLOPHOSPHAMIDE. [Suspect]
     Active Substance: CYCLOPHOSPHAMIDE
     Route: 065
  9. METHOTREXATE. [Suspect]
     Active Substance: METHOTREXATE
     Route: 065
  10. VINCRISTINE [Suspect]
     Active Substance: VINCRISTINE
     Route: 065
  11. TIOGUANINE [Suspect]
     Active Substance: THIOGUANINE ANHYDROUS
     Route: 065
  12. METHOTREXATE. [Suspect]
     Active Substance: METHOTREXATE
     Route: 065
  13. PURIXAN [Suspect]
     Active Substance: MERCAPTOPURINE
     Indication: ACUTE LYMPHOCYTIC LEUKAEMIA
     Route: 065
  14. VINCRISTINE [Suspect]
     Active Substance: VINCRISTINE
     Route: 065
  15. VINCRISTINE [Suspect]
     Active Substance: VINCRISTINE
     Route: 065
  16. PEG-L-ASPARAGINASE [Suspect]
     Active Substance: PEGASPARGASE
     Route: 065
  17. DAUNORUBICIN [Suspect]
     Active Substance: DAUNORUBICIN
     Route: 065

REACTIONS (3)
  - Jaundice [Recovered/Resolved]
  - Liver injury [Recovered/Resolved]
  - Blood bilirubin increased [Recovered/Resolved]
